FAERS Safety Report 7225653-4 (Version None)
Quarter: 2011Q1

REPORT INFORMATION
  Report Type: 
  Country: None (occurrence: None)
  Receive Date: 20110110
  Receipt Date: 20110110
  Transmission Date: 20110831
  Serious: Yes (Hospitalization)
  Sender: FDA-Public Use
  Company Number: None

PATIENT
  Age: 21 Year
  Sex: Male
  Weight: 52.6173 kg

DRUGS (1)
  1. MINOCIN [Suspect]
     Indication: ACNE
     Dates: start: 20070101, end: 20070201

REACTIONS (2)
  - PAIN [None]
  - COLITIS ULCERATIVE [None]
